FAERS Safety Report 19417330 (Version 3)
Quarter: 2021Q3

REPORT INFORMATION
  Report Type: Spontaneous
  Country: JP (occurrence: JP)
  Receive Date: 20210615
  Receipt Date: 20210729
  Transmission Date: 20211014
  Serious: Yes (Hospitalization, Disabling, Other)
  Sender: FDA-Public Use
  Company Number: JP-GLAXOSMITHKLINE-JP2021084719

PATIENT
  Age: 12 Year
  Sex: Female
  Weight: 40 kg

DRUGS (7)
  1. CALONAL [Concomitant]
     Active Substance: ACETAMINOPHEN
     Indication: PYREXIA
     Dosage: 2 DF
     Route: 048
     Dates: start: 20210407, end: 20210412
  2. VEEN?D [Concomitant]
     Active Substance: DEXTROSE
     Indication: DEHYDRATION
     Dosage: 500 ML
     Route: 041
     Dates: start: 20210410, end: 20210410
  3. RESTAMIN KOWA CREAM 1% [Concomitant]
     Indication: PRURITUS
     Dosage: UNK
     Route: 050
     Dates: start: 20210407, end: 20210412
  4. VALTREX [Suspect]
     Active Substance: VALACYCLOVIR HYDROCHLORIDE
     Indication: VARICELLA
     Dosage: 1000 MG, TID
     Route: 048
     Dates: start: 20210407, end: 20210412
  5. CEFDITOREN PIVOXIL TABLETS [Concomitant]
     Indication: INFECTION
     Dosage: 100 MG, TID
     Route: 048
     Dates: start: 20210410, end: 20210410
  6. VEEN?D [Concomitant]
     Active Substance: DEXTROSE
     Dosage: UNK
     Dates: start: 20210412, end: 20210412
  7. ROCEPHIN [Concomitant]
     Active Substance: CEFTRIAXONE SODIUM
     Indication: INFECTION
     Dosage: 1.5 G
     Route: 041
     Dates: start: 20210410, end: 20210410

REACTIONS (17)
  - Toxicity to various agents [Recovered/Resolved]
  - Pyrexia [Recovered/Resolved]
  - Headache [Recovered/Resolved]
  - Hypophagia [Recovered/Resolved]
  - Decreased appetite [Unknown]
  - Malaise [Unknown]
  - Infection [Unknown]
  - Renal disorder [Recovered/Resolved]
  - Urinary tract infection [Unknown]
  - Dehydration [Recovered/Resolved]
  - Renal failure [Recovered/Resolved]
  - Hypertension [Recovered/Resolved]
  - Vomiting [Unknown]
  - Tubulointerstitial nephritis [Recovered/Resolved]
  - Asthenia [Recovered/Resolved]
  - Nausea [Recovered/Resolved]
  - Acute kidney injury [Recovered/Resolved]

NARRATIVE: CASE EVENT DATE: 20210407
